FAERS Safety Report 14616921 (Version 1)
Quarter: 2018Q1

REPORT INFORMATION
  Report Type: Report from Study
  Country: None (occurrence: BE)
  Receive Date: 20180309
  Receipt Date: 20180309
  Transmission Date: 20180509
  Serious: Yes (Hospitalization)
  Sender: FDA-Public Use
  Company Number: BE-ABBVIE-18K-013-2279751-00

PATIENT
  Sex: Male

DRUGS (3)
  1. DUODOPA [Suspect]
     Active Substance: CARBIDOPA\LEVODOPA
     Dosage: DOSES CONTINUOUSLY MONITORED AND ADAPTED
     Route: 050
     Dates: start: 20120628, end: 20170925
  2. DUODOPA [Suspect]
     Active Substance: CARBIDOPA\LEVODOPA
     Indication: PARKINSON^S DISEASE
     Dosage: MD: 5 ML??CD: 3.5 ML/HR DURING 16 HRS??ED: 3 ML??ND: 2.3 ML/HR DURING 8 HRS
     Route: 050
     Dates: start: 20120625, end: 20120628
  3. DUODOPA [Suspect]
     Active Substance: CARBIDOPA\LEVODOPA
     Dosage: MD: 1 ML??CD: 3.8 ML/HR DURING 16 HRS??ED: 2.5 ML??ND: 1.8 ML/HR DURING 16 HRS
     Route: 050
     Dates: start: 20170925

REACTIONS (2)
  - Malnutrition [Unknown]
  - Feeding disorder [Unknown]
